FAERS Safety Report 20684681 (Version 1)
Quarter: 2022Q2

REPORT INFORMATION
  Report Type: Spontaneous
  Country: IR (occurrence: IR)
  Receive Date: 20220407
  Receipt Date: 20220407
  Transmission Date: 20220721
  Serious: Yes (Other)
  Sender: FDA-Public Use
  Company Number: IR-BRISTOL-MYERS SQUIBB COMPANY-BMS-2022-036643

PATIENT
  Age: 13 Year
  Sex: Female

DRUGS (10)
  1. ATAZANAVIR SULFATE [Suspect]
     Active Substance: ATAZANAVIR SULFATE
     Indication: COVID-19
     Dosage: UNK
     Route: 065
  2. LOPINAVIR\RITONAVIR [Suspect]
     Active Substance: LOPINAVIR\RITONAVIR
     Indication: COVID-19
  3. RITONAVIR [Suspect]
     Active Substance: RITONAVIR
     Indication: Product used for unknown indication
     Dosage: UNK
     Route: 065
  4. LOPINAVIR [Suspect]
     Active Substance: LOPINAVIR
     Indication: Product used for unknown indication
     Dosage: UNK
     Route: 065
  5. HYDROXYCHLOROQUINE [Concomitant]
     Active Substance: HYDROXYCHLOROQUINE
     Indication: COVID-19
  6. OXYGEN [Concomitant]
     Active Substance: OXYGEN
     Indication: COVID-19
  7. CEFTRIAXONE [Concomitant]
     Active Substance: CEFTRIAXONE
     Indication: COVID-19
  8. CIPROFLOXACIN [Concomitant]
     Active Substance: CIPROFLOXACIN
     Indication: COVID-19
  9. VANCOMYCIN [Concomitant]
     Active Substance: VANCOMYCIN
     Indication: COVID-19
  10. CEFOTAXIME [Concomitant]
     Active Substance: CEFOTAXIME SODIUM
     Indication: COVID-19

REACTIONS (3)
  - Liver function test abnormal [Recovered/Resolved]
  - Blood bilirubin abnormal [Recovered/Resolved]
  - Intentional product use issue [Unknown]
